FAERS Safety Report 19600835 (Version 3)
Quarter: 2021Q4

REPORT INFORMATION
  Report Type: Spontaneous
  Country: US (occurrence: US)
  Receive Date: 20210723
  Receipt Date: 20211210
  Transmission Date: 20220303
  Serious: No
  Sender: FDA-Public Use
  Company Number: US-LUPIN PHARMACEUTICALS INC.-2021-12390

PATIENT
  Sex: Male
  Weight: 74.83 kg

DRUGS (3)
  1. TESTOSTERONE GEL 1.62% [Suspect]
     Active Substance: TESTOSTERONE
     Indication: Libido decreased
     Dosage: 1 DOSAGE FORM, 1PUMP, ONCE A DAY WHICH WAS AROUND 26 TO 28ML
     Route: 061
  2. TESTOSTERONE GEL 1.62% [Suspect]
     Active Substance: TESTOSTERONE
     Indication: Erectile dysfunction
     Dosage: 1 DOSAGE FORM, QD, 1PUMP, ONCE A DAY WHICH WAS AROUND 26 TO 28ML
     Route: 061
     Dates: start: 20210701
  3. VITAMIN D [Concomitant]
     Active Substance: VITAMIN D NOS
     Indication: Product used for unknown indication
     Dosage: UNK
     Route: 065

REACTIONS (3)
  - Drug ineffective [Unknown]
  - Product use complaint [Unknown]
  - Product quality issue [Unknown]

NARRATIVE: CASE EVENT DATE: 20210101
